FAERS Safety Report 21153643 (Version 1)
Quarter: 2022Q3

REPORT INFORMATION
  Report Type: Spontaneous
  Country: CN (occurrence: CN)
  Receive Date: 20220801
  Receipt Date: 20220801
  Transmission Date: 20221027
  Serious: Yes (Hospitalization)
  Sender: FDA-Public Use
  Company Number: None

PATIENT
  Age: 66 Year
  Sex: Female
  Weight: 66 kg

DRUGS (6)
  1. CYCLOPHOSPHAMIDE [Suspect]
     Active Substance: CYCLOPHOSPHAMIDE
     Indication: Invasive ductal breast carcinoma
     Dosage: 850.000000MG ONCE DAILY, CYCLOPHOSPHAMIDE FOR INJECTION 850MG DILUTED WITH 0.9% SODIUM CHLORIDE INJE
     Route: 042
     Dates: start: 20220624, end: 20220624
  2. CYCLOPHOSPHAMIDE [Suspect]
     Active Substance: CYCLOPHOSPHAMIDE
     Indication: Hormone receptor positive breast cancer
  3. SODIUM CHLORIDE [Suspect]
     Active Substance: SODIUM CHLORIDE
     Indication: Medication dilution
     Dosage: 250ML, ONCE DAILY, DOCETAXEL INJECTION 128MG DILUTED WITH 0.9% SODIUM CHLORIDE INJECTION 250ML
     Route: 042
     Dates: start: 20220624, end: 20220624
  4. SODIUM CHLORIDE [Suspect]
     Active Substance: SODIUM CHLORIDE
     Dosage: 100ML, ONCE DAILY, CYCLOPHOSPHAMIDE FOR INJECTION 850MG DILUTED WITH 0.9% SODIUM CHLORIDE INJECTION
     Route: 042
     Dates: start: 20220624, end: 20220624
  5. DOCETAXEL [Suspect]
     Active Substance: DOCETAXEL
     Indication: Invasive ductal breast carcinoma
     Dosage: 128.000000MG ONCE DAILY,DOCETAXEL INJECTION 128MG DILUTED WITH 0.9% SODIUM CHLORIDE INJECTION 250ML
     Route: 042
     Dates: start: 20220624, end: 20220624
  6. DOCETAXEL [Suspect]
     Active Substance: DOCETAXEL
     Indication: Hormone receptor positive breast cancer

REACTIONS (2)
  - White blood cell count decreased [Recovering/Resolving]
  - Neutrophil count decreased [Recovering/Resolving]

NARRATIVE: CASE EVENT DATE: 20220707
